FAERS Safety Report 7133244-9 (Version None)
Quarter: 2010Q4

REPORT INFORMATION
  Report Type: 
  Country: None (occurrence: None)
  Receive Date: 20101202
  Receipt Date: 20101202
  Transmission Date: 20110411
  Serious: Yes (Other)
  Sender: FDA-Public Use
  Company Number: NZ-AMGEN-KDC392484

PATIENT
  Sex: Male

DRUGS (6)
  1. DENOSUMAB [Suspect]
     Indication: PROSTATE CANCER
     Dosage: UNK UNK, QMO
     Route: 058
     Dates: start: 20070602
  2. FLUVAX                             /00027001/ [Concomitant]
     Dosage: UNK UNK, UNK
     Dates: start: 20080520, end: 20080520
  3. CALCIUM CARBONATE [Concomitant]
     Dosage: 1.25 G, QD
     Route: 048
     Dates: start: 20070702
  4. VITAMIN A [Concomitant]
     Dosage: 300 IU, QD
     Route: 048
     Dates: start: 20070702
  5. BETAMETHASONE VALERATE [Concomitant]
     Dosage: UNK UNK, BID
     Route: 062
     Dates: start: 20080220
  6. LACTULOSE [Concomitant]
     Dosage: 10 ML, PRN
     Route: 048
     Dates: start: 20090514, end: 20090515

REACTIONS (1)
  - OSTEONECROSIS OF JAW [None]
